FAERS Safety Report 5919935-3 (Version None)
Quarter: 2008Q4

REPORT INFORMATION
  Report Type: 
  Country: None (occurrence: None)
  Receive Date: 20081015
  Receipt Date: 20081007
  Transmission Date: 20090506
  Serious: Yes (Other)
  Sender: FDA-Public Use
  Company Number: US-ALLERGAN-0812676US

PATIENT
  Sex: Female

DRUGS (5)
  1. BOTOX [Suspect]
     Indication: MIGRAINE
     Dosage: UNK, SINGLE
     Route: 030
     Dates: start: 20051001, end: 20051001
  2. BOTOX [Suspect]
     Dosage: UNK, SINGLE
     Route: 030
     Dates: start: 20060701, end: 20060701
  3. BOTOX [Suspect]
     Dosage: UNK, SINGLE
     Route: 030
     Dates: start: 20061001, end: 20061001
  4. PETADOLEX [Concomitant]
     Indication: MIGRAINE
     Dosage: BUTTERBUR - HERBAL
  5. TOPAMAX [Concomitant]
     Indication: MIGRAINE

REACTIONS (30)
  - ARTHRALGIA [None]
  - ASTHENIA [None]
  - BLISTER [None]
  - BLOOD POTASSIUM DECREASED [None]
  - BURNING SENSATION [None]
  - CHEST PAIN [None]
  - CHOKING [None]
  - DIARRHOEA [None]
  - DIPLEGIA [None]
  - DRY THROAT [None]
  - DYSGEUSIA [None]
  - DYSPHAGIA [None]
  - DYSPNOEA [None]
  - FOREIGN BODY TRAUMA [None]
  - INCONTINENCE [None]
  - MUSCLE TWITCHING [None]
  - MUSCULAR WEAKNESS [None]
  - MYALGIA [None]
  - NAUSEA [None]
  - PAIN IN EXTREMITY [None]
  - PARALYSIS [None]
  - PAROSMIA [None]
  - PRURITUS [None]
  - SKIN BURNING SENSATION [None]
  - SKIN EXFOLIATION [None]
  - SKIN SWELLING [None]
  - THYROXINE INCREASED [None]
  - TINNITUS [None]
  - VISUAL IMPAIRMENT [None]
  - WEIGHT DECREASED [None]
